FAERS Safety Report 23281424 (Version 2)
Quarter: 2024Q1

REPORT INFORMATION
  Report Type: Spontaneous
  Country: US (occurrence: US)
  Receive Date: 20231211
  Receipt Date: 20240115
  Transmission Date: 20240410
  Serious: Yes (Death)
  Sender: FDA-Public Use
  Company Number: US-AMX-006495

PATIENT
  Age: 62 Year
  Sex: Male

DRUGS (2)
  1. RELYVRIO [Suspect]
     Active Substance: SODIUM PHENYLBUTYRATE\TAURURSODIOL
     Indication: Amyotrophic lateral sclerosis
     Dosage: 1 SACHET ONCE DAILY FOR 3WKS, THEN 1 SACHET TWICE DAILY.
     Route: 048
     Dates: start: 202305, end: 20231019
  2. Radicava ORS SUSP [Concomitant]
     Indication: Product used for unknown indication
     Dosage: BY MOUTH OR FEEDING TUBE 1 TIME A DAY FOR 10 OUT OF 14 DAYS THEN 14 DAYS OFF.
     Dates: start: 202301

REACTIONS (1)
  - Death [Fatal]

NARRATIVE: CASE EVENT DATE: 20231126
